FAERS Safety Report 4726174-0 (Version None)
Quarter: 2005Q3

REPORT INFORMATION
  Report Type: 
  Country: None (occurrence: None)
  Receive Date: 20050725
  Receipt Date: 20050725
  Transmission Date: 20060218
  Serious: Yes (Other)
  Sender: FDA-Public Use
  Company Number: None

PATIENT
  Age: 49 Year
  Sex: Male
  Weight: 102.0593 kg

DRUGS (1)
  1. GENERIC DEMEROL 100 MG 4X DAILY [Suspect]
     Indication: BACK PAIN
     Dosage: ORALLY 4 X DAY
     Route: 048
     Dates: start: 20050114

REACTIONS (3)
  - DYSPNOEA [None]
  - DYSURIA [None]
  - PRURITUS GENERALISED [None]
